FAERS Safety Report 8890039 (Version 1)
Quarter: 2012Q4

REPORT INFORMATION
  Report Type: 
  Country: CA (occurrence: CA)
  Receive Date: 20121106
  Receipt Date: 20121106
  Transmission Date: 20130627
  Serious: Yes (Other)
  Sender: FDA-Public Use
  Company Number: PHHY2007CA00881

PATIENT
  Sex: Male

DRUGS (6)
  1. SANDOSTATIN LAR [Suspect]
     Indication: NEUROENDOCRINE TUMOUR
     Dosage: 20 mg, every 4 weeks
     Route: 030
     Dates: start: 20070727, end: 20071119
  2. ASA [Concomitant]
  3. FLOMAX [Concomitant]
  4. FLUOXETINE [Concomitant]
  5. K-DUR [Concomitant]
  6. PROSCAR [Concomitant]

REACTIONS (2)
  - Hepatic neoplasm [Unknown]
  - Blood pressure systolic increased [Unknown]
